FAERS Safety Report 6053220-7 (Version None)
Quarter: 2009Q1

REPORT INFORMATION
  Report Type: 
  Country: None (occurrence: None)
  Receive Date: 20090123
  Receipt Date: 20090107
  Transmission Date: 20090719
  Serious: Yes (Other)
  Sender: FDA-Public Use
  Company Number: 8041236

PATIENT
  Age: 53 Year
  Sex: Male

DRUGS (6)
  1. PREDNISOLONE [Suspect]
     Indication: IGA NEPHROPATHY
     Dosage: 1 MG/KG
  2. PREDNISOLONE [Suspect]
     Indication: IGA NEPHROPATHY
     Dosage: 40 MG 1/2 D
  3. LOOP DIURETIC [Concomitant]
  4. CALCIUM [Concomitant]
  5. RESUVASTATIN [Concomitant]
  6. MULTIVITAMIN /00831701/ [Concomitant]

REACTIONS (1)
  - HEPATITIS VIRAL [None]
